FAERS Safety Report 4471330-2 (Version None)
Quarter: 2004Q3

REPORT INFORMATION
  Report Type: 
  Country: None (occurrence: None)
  Receive Date: 20040909
  Receipt Date: 20040602
  Transmission Date: 20050211
  Serious: Yes (Other)
  Sender: FDA-Public Use
  Company Number: F03200400045

PATIENT
  Age: 63 Year
  Sex: Female
  Weight: 52.1637 kg

DRUGS (6)
  1. OXALIPLATIN-SOLUTION [Suspect]
     Indication: COLON CANCER METASTATIC
     Dosage: 35 MG/M2 Q2W INTRAVENOUS NOS
     Route: 042
     Dates: start: 20040428, end: 20040428
  2. FLUOROURACIL [Suspect]
     Indication: COLON CANCER METASTATIC
     Dates: start: 20040428
  3. SIMVASTATIN [Concomitant]
  4. PANTOPRAZOLE SODIUM [Concomitant]
  5. LEUCOVORIN [Suspect]
     Indication: COLON CANCER METASTATIC
     Dates: start: 20040428
  6. VITAMINS NOS [Concomitant]

REACTIONS (4)
  - DIFFICULTY IN WALKING [None]
  - NEUROPATHY PERIPHERAL [None]
  - SPEECH DISORDER [None]
  - TRISMUS [None]
